FAERS Safety Report 9018069 (Version 1)
Quarter: 2013Q1

REPORT INFORMATION
  Report Type: Spontaneous
  Country: US (occurrence: US)
  Receive Date: 20130117
  Receipt Date: 20130117
  Transmission Date: 20140127
  Serious: No
  Sender: FDA-Public Use
  Company Number: US-009507513-1301USA008385

PATIENT
  Age: 85 Year
  Sex: Male

DRUGS (2)
  1. CLARITIN LIQUIGELS [Suspect]
     Indication: NASOPHARYNGITIS
     Dosage: 20 MG, Q2H
     Route: 048
     Dates: start: 20130107
  2. CLARITIN LIQUIGELS [Suspect]
     Indication: RHINORRHOEA

REACTIONS (4)
  - Inappropriate schedule of drug administration [Unknown]
  - Overdose [Unknown]
  - No adverse event [Unknown]
  - Drug ineffective [Unknown]
